FAERS Safety Report 7404551-7 (Version None)
Quarter: 2011Q2

REPORT INFORMATION
  Report Type: 
  Country: None (occurrence: None)
  Receive Date: 20110411
  Receipt Date: 20110401
  Transmission Date: 20111010
  Serious: Yes (Other)
  Sender: FDA-Public Use
  Company Number: CH-AMGEN-CHESP2011013607

PATIENT
  Age: 59 Year
  Sex: Female

DRUGS (4)
  1. HUMIRA [Suspect]
     Indication: RHEUMATOID ARTHRITIS
     Dosage: 40 MG, ONCE EVERY SECOND WEEK
     Route: 058
     Dates: start: 20090801, end: 20100210
  2. METHOTREXATE SODIUM [Suspect]
     Indication: RHEUMATOID ARTHRITIS
     Dosage: UNK
     Route: 048
     Dates: start: 20000101, end: 20070501
  3. ENBREL [Suspect]
     Indication: RHEUMATOID ARTHRITIS
     Dosage: UNK
     Route: 058
     Dates: start: 20060701, end: 20090801
  4. ACTEMRA [Suspect]
     Indication: RHEUMATOID ARTHRITIS
     Dosage: 8 MG/KG, ONCE MONTHLY
     Route: 041
     Dates: start: 20100323, end: 20110208

REACTIONS (3)
  - CEREBRAL ATROPHY [None]
  - ENCEPHALOPATHY [None]
  - CEREBROVASCULAR ACCIDENT [None]
